FAERS Safety Report 7494310-1 (Version None)
Quarter: 2011Q2

REPORT INFORMATION
  Report Type: 
  Country: None (occurrence: None)
  Receive Date: 20110520
  Receipt Date: 20110516
  Transmission Date: 20111010
  Serious: Yes (Death, Other)
  Sender: FDA-Public Use
  Company Number: PHHY2011US42195

PATIENT
  Sex: Female

DRUGS (2)
  1. VALSARTAN [Suspect]
     Dosage: UNK UKN, UNK
     Route: 064
  2. ATENOLOL [Suspect]
     Dosage: 75MG/DAY
     Route: 064

REACTIONS (4)
  - RENAL DISORDER [None]
  - PULMONARY MALFORMATION [None]
  - DRUG EXPOSURE DURING PREGNANCY [None]
  - STILLBIRTH [None]
